FAERS Safety Report 4535338-0 (Version None)
Quarter: 2004Q4

REPORT INFORMATION
  Report Type: 
  Country: None (occurrence: None)
  Receive Date: 20041214
  Receipt Date: 20040913
  Transmission Date: 20050328
  Serious: No
  Sender: FDA-Public Use
  Company Number: 2004235462US

PATIENT
  Age: 57 Year
  Sex: Female
  Weight: 61.2 kg

DRUGS (1)
  1. BEXTRA [Suspect]
     Indication: NECK PAIN
     Dosage: ORAL
     Route: 048
     Dates: start: 20040903, end: 20040905

REACTIONS (2)
  - GLOSSODYNIA [None]
  - SWOLLEN TONGUE [None]
